FAERS Safety Report 9678882 (Version 1)
Quarter: 2013Q4

REPORT INFORMATION
  Report Type: Spontaneous
  Country: GB (occurrence: GB)
  Receive Date: 20131108
  Receipt Date: 20131108
  Transmission Date: 20140711
  Serious: Yes (Other)
  Sender: FDA-Public Use
  Company Number: GB-009507513-1311GBR000937

PATIENT
  Age: 22 Year
  Sex: Male

DRUGS (9)
  1. MIRTAZAPINE [Suspect]
     Indication: DEPRESSION
     Dosage: 30 MG, QD
     Route: 048
     Dates: start: 20130913
  2. OMEPRAZOLE [Suspect]
     Indication: PROPHYLAXIS
     Dosage: 20 MG, QD
     Route: 048
     Dates: start: 20130913, end: 20131015
  3. BUMETANIDE [Suspect]
     Indication: POLYURIA
     Dosage: 1 MG, QD
     Route: 048
     Dates: start: 20131005
  4. FLOXACILLIN [Suspect]
     Indication: ENDOCARDITIS
     Dosage: 2 G, QID
     Route: 042
     Dates: start: 20130913, end: 20131016
  5. FLOXACILLIN [Suspect]
     Indication: STAPHYLOCOCCAL BACTERAEMIA
  6. FRAGMIN [Suspect]
     Dosage: 5000 IU, QD
     Route: 058
     Dates: start: 20130913, end: 20131015
  7. IVABRADINE [Concomitant]
  8. METHADONE HYDROCHLORIDE [Concomitant]
  9. RAMIPRIL [Concomitant]

REACTIONS (1)
  - Thrombocytopenia [Not Recovered/Not Resolved]
